FAERS Safety Report 11592331 (Version 1)
Quarter: 2015Q4

REPORT INFORMATION
  Report Type: Spontaneous
  Country: US (occurrence: US)
  Receive Date: 20151005
  Receipt Date: 20151005
  Transmission Date: 20160304
  Serious: Yes (Other)
  Sender: FDA-Public Use
  Company Number: US-THE MEDICINES COMPANY-US-MDCO-15-00451

PATIENT
  Age: 42 Year
  Sex: Male

DRUGS (2)
  1. CLEVIPREX [Suspect]
     Active Substance: CLEVIDIPINE
     Dosage: 8MG/H
     Route: 041
     Dates: start: 2013, end: 2013
  2. CLEVIPREX [Suspect]
     Active Substance: CLEVIDIPINE
     Indication: HYPERTENSION
     Dosage: 16MG/H
     Route: 041
     Dates: start: 2013, end: 2013

REACTIONS (3)
  - Unresponsive to stimuli [Recovered/Resolved]
  - Hypotension [Unknown]
  - Nodal arrhythmia [Recovered/Resolved]

NARRATIVE: CASE EVENT DATE: 2013
